FAERS Safety Report 8372663-X (Version None)
Quarter: 2012Q2

REPORT INFORMATION
  Report Type: 
  Country: None (occurrence: None)
  Receive Date: 20120521
  Receipt Date: 20120516
  Transmission Date: 20120825
  Serious: Yes (Other)
  Sender: FDA-Public Use
  Company Number: PHHY2012DE042570

PATIENT

DRUGS (1)
  1. ZOMETA [Suspect]
     Dosage: 4 MG/ 5 ML
     Route: 042

REACTIONS (1)
  - OSTEONECROSIS OF JAW [None]
